FAERS Safety Report 8807462 (Version 1)
Quarter: 2012Q4

REPORT INFORMATION
  Report Type: 
  Country: US (occurrence: US)
  Receive Date: 20120925
  Receipt Date: 20120925
  Transmission Date: 20130627
  Serious: No
  Sender: FDA-Public Use
  Company Number: US-ASTRAZENECA-2012SE70960

PATIENT
  Age: 83 Year
  Sex: Female
  Weight: 54.4 kg

DRUGS (4)
  1. PULMICORT RESPULES [Suspect]
     Indication: NASAL POLYPS
     Route: 055
     Dates: start: 201202, end: 201203
  2. PULMICORT RESPULES [Suspect]
     Indication: NASAL POLYPS
     Dosage: BID
     Route: 055
     Dates: start: 20120820
  3. ADVAIR [Concomitant]
     Indication: EMPHYSEMA
  4. ATENOLOL [Concomitant]
     Indication: HYPERTENSION

REACTIONS (4)
  - Deafness [Unknown]
  - Condition aggravated [Unknown]
  - Off label use [Unknown]
  - Off label use [Unknown]
